FAERS Safety Report 9580943 (Version 1)
Quarter: 2013Q4

REPORT INFORMATION
  Report Type: Spontaneous
  Country: US (occurrence: None)
  Receive Date: 20131001
  Receipt Date: 20131001
  Transmission Date: 20140711
  Serious: No
  Sender: FDA-Public Use
  Company Number: None

PATIENT
  Age: 9 Year
  Sex: Male
  Weight: 31.3 kg

DRUGS (1)
  1. DEXTROAMP-AMPHET ER CAP 20 MG ACTAVI S ELIZABETH LLC [Suspect]
     Indication: ATTENTION DEFICIT/HYPERACTIVITY DISORDER
     Dosage: 1 PILL
     Route: 048
     Dates: start: 20130911, end: 20130930

REACTIONS (8)
  - Product substitution issue [None]
  - Attention deficit/hyperactivity disorder [None]
  - Condition aggravated [None]
  - Aggression [None]
  - Aggression [None]
  - Drug ineffective [None]
  - Thinking abnormal [None]
  - Impulsive behaviour [None]
